FAERS Safety Report 6498143-4 (Version None)
Quarter: 2009Q4

REPORT INFORMATION
  Report Type: 
  Country: None (occurrence: None)
  Receive Date: 20091127
  Receipt Date: 20090707
  Transmission Date: 20100525
  Serious: Yes (Other)
  Sender: FDA-Public Use
  Company Number: 287945

PATIENT
  Age: 70 Year
  Sex: Female
  Weight: 83.9 kg

DRUGS (2)
  1. NOVOLOG [Suspect]
     Indication: INSULIN-REQUIRING TYPE 2 DIABETES MELLITUS
     Dosage: IU, QD, SUBCUTANEOUS
     Route: 058
     Dates: start: 20040101
  2. LANTUS (INSULIN GLARGINE) SUSPENSION FOR INJECTION [Concomitant]

REACTIONS (2)
  - BLOOD GLUCOSE INCREASED [None]
  - LETHARGY [None]
